FAERS Safety Report 17455588 (Version 1)
Quarter: 2020Q1

REPORT INFORMATION
  Report Type: Spontaneous
  Country: CA (occurrence: CA)
  Receive Date: 20200225
  Receipt Date: 20200225
  Transmission Date: 20200409
  Serious: Yes (Other)
  Sender: FDA-Public Use
  Company Number: CA-CELLTRION INC.-2019CA024153

PATIENT

DRUGS (33)
  1. INFLECTRA [Suspect]
     Active Substance: INFLIXIMAB-DYYB
     Dosage: 10 MG/KG, EVERY 0, 2, 6 WEEKS, THEN EVERY 8 WEEKS
     Route: 042
     Dates: start: 20190725
  2. INFLECTRA [Suspect]
     Active Substance: INFLIXIMAB-DYYB
     Dosage: 10 MG/KG, EVERY 0, 2, 6 WEEKS, THEN EVERY 8 WEEKS
     Route: 042
     Dates: start: 20191018
  3. M-ESLON [Concomitant]
     Active Substance: MORPHINE SULFATE
     Dosage: 150 MG, 2X/DAY
  4. SULCRATE [Concomitant]
     Active Substance: SUCRALFATE
     Dosage: 5 ML, 4X/DAY
     Route: 048
  5. RATIO-PROCTOSONE [Concomitant]
     Indication: HAEMORRHOIDS
     Dosage: UNK, 2X/DAY
     Route: 061
  6. RIVA-RANITIDINE [Concomitant]
     Dosage: 150 MG, 2X/DAY
     Route: 048
  7. HUMIRA [Concomitant]
     Active Substance: ADALIMUMAB
     Dosage: 40 MG, WEEKLY
  8. INFLECTRA [Suspect]
     Active Substance: INFLIXIMAB-DYYB
     Dosage: 10 MG/KG, EVERY 0, 2, 6 WEEKS, THEN EVERY 8 WEEKS
     Route: 042
     Dates: start: 20190819
  9. INFLECTRA [Suspect]
     Active Substance: INFLIXIMAB-DYYB
     Dosage: 10 MG/KG, EVERY 0, 2, 6 WEEKS, THEN EVERY 8 WEEKS
     Route: 042
     Dates: start: 20191217
  10. PREDNISONE TEVA [Concomitant]
     Active Substance: PREDNISONE
     Dosage: 5 MG, UNK TAPERING
     Route: 048
  11. STATEX [MORPHINE SULFATE] [Concomitant]
     Active Substance: MORPHINE SULFATE
     Indication: PAIN
     Dosage: 5 MG, AS NEEDED (EVERY HOUR PRN)
     Route: 048
  12. ACETAMINOPHEN. [Concomitant]
     Active Substance: ACETAMINOPHEN
     Indication: PAIN
     Dosage: 1-2 TABS QID, AS NEEDED
  13. ASACOL [Concomitant]
     Active Substance: MESALAMINE
     Dosage: 400 MG, 3X/DAY
  14. PURINETHOL [Concomitant]
     Active Substance: MERCAPTOPURINE
     Dosage: 150 MG, 1X/DAY
     Route: 048
  15. INFLECTRA [Suspect]
     Active Substance: INFLIXIMAB-DYYB
     Dosage: 10 MG/KG, EVERY 0, 2, 6 WEEKS, THEN EVERY 8 WEEKS
     Route: 042
     Dates: start: 20200211
  16. PREDNISONE. [Concomitant]
     Active Substance: PREDNISONE
     Dosage: 5 MG, UNK (TAPERING)
     Route: 048
  17. LORAZEPAM. [Concomitant]
     Active Substance: LORAZEPAM
     Dosage: 1 MG, AS NEEDED (HS)
     Route: 048
  18. TARO-ZOLEDRONIC ACID [Concomitant]
     Active Substance: ZOLEDRONIC ACID
     Dosage: 5 MG, UNK
     Route: 042
  19. KETAMINE [Concomitant]
     Active Substance: KETAMINE
     Dosage: 2 %, AS NEEDED (QID)
     Route: 061
  20. MEZAVANT [Concomitant]
     Active Substance: MESALAMINE
     Dosage: 1.2 G, UNK
  21. INFLECTRA [Suspect]
     Active Substance: INFLIXIMAB-DYYB
     Indication: CROHN^S DISEASE
     Dosage: 5 MG/KG, EVERY 0, 2, 6 WEEKS, THEN EVERY 8 WEEKS
     Route: 042
     Dates: start: 20190612, end: 20190819
  22. INFLECTRA [Suspect]
     Active Substance: INFLIXIMAB-DYYB
     Dosage: 400 MG, EVERY 8 WEEKS
     Route: 042
     Dates: start: 20191018
  23. RANITIDINE TEVA [Concomitant]
     Dosage: 150 MG, 2X/DAY
     Route: 048
  24. ONDANSETRON. [Concomitant]
     Active Substance: ONDANSETRON
     Dosage: 3/4 TAB TID AS NEEDED
     Route: 048
  25. JAMP CALCIUM [Concomitant]
     Dosage: 500 MG, 2X/DAY
  26. ESOMEPRAZOLE MYLAN [ESOMEPRAZOLE] [Concomitant]
     Active Substance: ESOMEPRAZOLE SODIUM
     Dosage: 40 MG, 1X/DAY
     Route: 048
  27. METADOL [METHADONE HYDROCHLORIDE] [Concomitant]
     Active Substance: METHADONE HYDROCHLORIDE
     Dosage: 0.5 MG, 2X/DAY (1/2 TAB)
     Route: 048
  28. CALCIUM [Concomitant]
     Active Substance: CALCIUM
     Dosage: 500 MG, UNK
  29. JAMP DICYCLOMINE HCL [Concomitant]
     Dosage: 2 TABS TID (3X/DAY) Q 8H + 1 TAB HS PO
     Route: 048
  30. INFLECTRA [Suspect]
     Active Substance: INFLIXIMAB-DYYB
     Dosage: 10 MG/KG, EVERY 0, 2, 6 WEEKS, THEN EVERY 8 WEEKS
     Route: 042
     Dates: start: 20191217
  31. RATIO-NYSTATIN [Concomitant]
     Active Substance: NYSTATIN
     Dosage: 100000 IU, 4X/DAY
  32. SALOFALK [MESALAZINE] [Concomitant]
     Active Substance: MESALAMINE
     Dosage: 500 MG, HS
  33. AZOLE [Concomitant]
     Active Substance: ALBENDAZOLE
     Dosage: 40 MG, UNK

REACTIONS (11)
  - Weight increased [Not Recovered/Not Resolved]
  - Nasopharyngitis [Unknown]
  - Pharyngeal paraesthesia [Recovered/Resolved]
  - Off label use [Unknown]
  - Myalgia [Unknown]
  - Dehydration [Unknown]
  - Poor venous access [Unknown]
  - Dysphagia [Unknown]
  - Vein rupture [Unknown]
  - Intentional product use issue [Unknown]
  - Oropharyngeal pain [Unknown]

NARRATIVE: CASE EVENT DATE: 20190819
